FAERS Safety Report 16980715 (Version 1)
Quarter: 2019Q4

REPORT INFORMATION
  Report Type: Spontaneous
  Country: US (occurrence: US)
  Receive Date: 20191031
  Receipt Date: 20191031
  Transmission Date: 20200122
  Serious: No
  Sender: FDA-Public Use
  Company Number: US-PERRIGO-19US005298

PATIENT
  Sex: Female

DRUGS (1)
  1. UNISOM SLEEPTABS [Suspect]
     Active Substance: DOXYLAMINE SUCCINATE
     Indication: MORNING SICKNESS
     Dosage: UNKNOWN, UNKNOWN
     Route: 048

REACTIONS (2)
  - Feeling drunk [Recovered/Resolved]
  - Off label use [Recovered/Resolved]
